FAERS Safety Report 11767606 (Version 1)
Quarter: 2015Q4

REPORT INFORMATION
  Report Type: Spontaneous
  Country: US (occurrence: US)
  Receive Date: 20151123
  Receipt Date: 20151123
  Transmission Date: 20160304
  Serious: Yes (Hospitalization)
  Sender: FDA-Public Use
  Company Number: PHHY2015US148645

PATIENT
  Sex: Female

DRUGS (10)
  1. GABAPENTIN. [Suspect]
     Active Substance: GABAPENTIN
     Dosage: 2.5 MG/KG, EVERY 12 H ON DAY 4 OF LIFE
     Route: 065
  2. GABAPENTIN. [Suspect]
     Active Substance: GABAPENTIN
     Dosage: 5 MG/KG, BID ON DAY 34
     Route: 065
  3. GABAPENTIN. [Suspect]
     Active Substance: GABAPENTIN
     Dosage: 5 MG/KG, EVERY 12 H ON DAY 7OF LIFE
     Route: 065
  4. BACLOFEN. [Suspect]
     Active Substance: BACLOFEN
     Indication: FOETAL EXPOSURE DURING PREGNANCY
     Dosage: 30 MG, UNK
     Route: 064
  5. GABAPENTIN. [Suspect]
     Active Substance: GABAPENTIN
     Dosage: 0.15 MG/KG, EVERY 24 H ON DAY 9 OF LIFE
     Route: 065
  6. OXYBUTYNIN [Suspect]
     Active Substance: OXYBUTYNIN
     Indication: FOETAL EXPOSURE DURING PREGNANCY
     Dosage: 10 MG, QD
     Route: 064
  7. GABAPENTIN. [Suspect]
     Active Substance: GABAPENTIN
     Dosage: 5 MG/KG, BID TILL DAY 15
     Route: 065
  8. GABAPENTIN. [Suspect]
     Active Substance: GABAPENTIN
     Dosage: 7.5 MG/KG, BID ON DAY 27
     Route: 065
  9. GABAPENTIN. [Suspect]
     Active Substance: GABAPENTIN
     Dosage: 5 MG/KG, BID ON DAY 41
     Route: 065
  10. GABAPENTIN. [Suspect]
     Active Substance: GABAPENTIN
     Indication: FOETAL EXPOSURE DURING PREGNANCY
     Dosage: 600 MG, TID
     Route: 064

REACTIONS (3)
  - Withdrawal syndrome [Recovered/Resolved]
  - Foetal exposure during pregnancy [Unknown]
  - Premature baby [Unknown]
